FAERS Safety Report 8944778 (Version 1)
Quarter: 2012Q4

REPORT INFORMATION
  Report Type: 
  Country: US (occurrence: US)
  Receive Date: 20121204
  Receipt Date: 20121204
  Transmission Date: 20130627
  Serious: No
  Sender: FDA-Public Use
  Company Number: US-AMGEN-USASP2012067719

PATIENT
  Age: 56 Year
  Sex: Female

DRUGS (3)
  1. ENBREL [Suspect]
     Indication: RHEUMATOID ARTHRITIS
     Dosage: 25 mg, BIW
     Dates: start: 2006
  2. METHOTREXATE [Concomitant]
     Dosage: 12.5 mg, qwk
     Route: 048
     Dates: start: 2002
  3. PLAQUENIL                          /00072602/ [Concomitant]
     Dosage: 200 mg, bid
     Route: 048
     Dates: start: 2002

REACTIONS (17)
  - Cataract [Not Recovered/Not Resolved]
  - Dyspnoea [Recovered/Resolved]
  - Headache [Not Recovered/Not Resolved]
  - Laceration [Not Recovered/Not Resolved]
  - Corneal reflex decreased [Not Recovered/Not Resolved]
  - Photophobia [Not Recovered/Not Resolved]
  - Lacrimal disorder [Recovered/Resolved]
  - Nodule [Recovered/Resolved]
  - Acne [Recovered/Resolved]
  - Nervousness [Recovered/Resolved]
  - Middle ear effusion [Unknown]
  - Dry throat [Unknown]
  - Rhinorrhoea [Unknown]
  - Fatigue [Unknown]
  - Chest discomfort [Unknown]
  - Sinusitis [Recovered/Resolved]
  - Lymphadenopathy [Recovered/Resolved]
